FAERS Safety Report 21703789 (Version 2)
Quarter: 2023Q1

REPORT INFORMATION
  Report Type: Spontaneous
  Country: US (occurrence: None)
  Receive Date: 20221209
  Receipt Date: 20230105
  Transmission Date: 20230417
  Serious: No
  Sender: FDA-Public Use
  Company Number: 2022A381162

PATIENT
  Age: 13732 Day
  Sex: Female
  Weight: 102.1 kg

DRUGS (1)
  1. BYDUREON BCISE [Suspect]
     Active Substance: EXENATIDE
     Indication: Type 1 diabetes mellitus
     Route: 058
     Dates: start: 20221115

REACTIONS (4)
  - Injection site haemorrhage [Recovered/Resolved]
  - Intentional device misuse [Recovered/Resolved]
  - Product use issue [Unknown]
  - Device delivery system issue [Recovered/Resolved]

NARRATIVE: CASE EVENT DATE: 20221115
